FAERS Safety Report 8711275 (Version 2)
Quarter: 2013Q4

REPORT INFORMATION
  Report Type: Spontaneous
  Country: US (occurrence: US)
  Receive Date: 20120807
  Receipt Date: 20131008
  Transmission Date: 20140711
  Serious: Yes (Death, Other)
  Sender: FDA-Public Use
  Company Number: US-ROCHE-1097355

PATIENT
  Age: 26 Year
  Sex: Male
  Weight: 79.45 kg

DRUGS (3)
  1. ACCUTANE [Suspect]
     Indication: ACNE
     Route: 065
     Dates: start: 19850219, end: 19850507
  2. ACCUTANE [Suspect]
     Route: 065
     Dates: start: 19910204, end: 19910524
  3. ACCUTANE [Suspect]
     Route: 065
     Dates: start: 19850201, end: 19851001

REACTIONS (10)
  - Death [Fatal]
  - Crohn^s disease [Unknown]
  - Colon cancer [Unknown]
  - Inflammatory bowel disease [Unknown]
  - Gastrointestinal haemorrhage [Unknown]
  - Large intestine polyp [Unknown]
  - Aspartate aminotransferase increased [Unknown]
  - Alanine aminotransferase increased [Unknown]
  - Dry skin [Unknown]
  - Chapped lips [Unknown]
